FAERS Safety Report 6640614-1 (Version None)
Quarter: 2010Q1

REPORT INFORMATION
  Report Type: 
  Country: None (occurrence: None)
  Receive Date: 20100318
  Receipt Date: 20100312
  Transmission Date: 20100710
  Serious: Yes (Other)
  Sender: FDA-Public Use
  Company Number: US-BAYER-200942296NA

PATIENT
  Age: 32 Year
  Sex: Female
  Weight: 68 kg

DRUGS (2)
  1. MIRENA [Suspect]
     Indication: CONTRACEPTION
     Route: 015
     Dates: start: 20061101, end: 20091101
  2. ANTIBIOTICS [Concomitant]

REACTIONS (8)
  - DEVICE BREAKAGE [None]
  - DEVICE EXPULSION [None]
  - DIARRHOEA [None]
  - MENSTRUATION DELAYED [None]
  - NEPHROLITHIASIS [None]
  - PAIN [None]
  - PERICARDIAL EFFUSION [None]
  - VOMITING [None]
